FAERS Safety Report 21376232 (Version 1)
Quarter: 2022Q3

REPORT INFORMATION
  Report Type: Spontaneous
  Country: US (occurrence: None)
  Receive Date: 20220923
  Receipt Date: 20220923
  Transmission Date: 20221027
  Serious: Yes (Other)
  Sender: FDA-Public Use
  Company Number: None

PATIENT
  Age: 37 Year
  Sex: Male
  Weight: 116.1 kg

DRUGS (5)
  1. TALTZ [Suspect]
     Active Substance: IXEKIZUMAB
     Indication: Psoriatic arthropathy
     Dosage: OTHER QUANTITY : 1 INJECTION(S);?OTHER FREQUENCY : EVERY 4 WEEKS;?
     Route: 058
     Dates: start: 20220910
  2. CYCLOBENZAPRINE [Concomitant]
     Active Substance: CYCLOBENZAPRINE
  3. PANTOPRAZOLE [Concomitant]
     Active Substance: PANTOPRAZOLE
  4. TALTZ [Concomitant]
     Active Substance: IXEKIZUMAB
  5. MODAFINIL [Concomitant]
     Active Substance: MODAFINIL

REACTIONS (6)
  - Injection site swelling [None]
  - Injection site erythema [None]
  - Injection site rash [None]
  - Injection site pruritus [None]
  - Injection site warmth [None]
  - Skin tightness [None]

NARRATIVE: CASE EVENT DATE: 20220922
